FAERS Safety Report 19898700 (Version 3)
Quarter: 2022Q1

REPORT INFORMATION
  Report Type: Spontaneous
  Country: US (occurrence: US)
  Receive Date: 20210929
  Receipt Date: 20220304
  Transmission Date: 20220423
  Serious: No
  Sender: FDA-Public Use
  Company Number: US-INCYTE CORPORATION-2021IN008682

PATIENT

DRUGS (7)
  1. JAKAFI [Suspect]
     Active Substance: RUXOLITINIB
     Indication: Polycythaemia vera
     Dosage: 20 MILLIGRAM, BID
     Route: 048
     Dates: start: 20210722
  2. JAKAFI [Suspect]
     Active Substance: RUXOLITINIB
     Dosage: 20 MILLIGRAM, QD
     Route: 048
     Dates: start: 20210802
  3. JAKAFI [Suspect]
     Active Substance: RUXOLITINIB
     Dosage: 10MG QAM, 20MG QPM
     Route: 048
     Dates: start: 20210812
  4. JAKAFI [Suspect]
     Active Substance: RUXOLITINIB
     Dosage: 20 MILLIGRAM, BID WITH OR WITHOUT FOOD
     Route: 048
     Dates: start: 20210722
  5. DEXTROAMPHETAMINE [Concomitant]
     Active Substance: DEXTROAMPHETAMINE
     Indication: Product used for unknown indication
     Dosage: 5 MILLIGRAM
     Route: 065
  6. HYDROXYUREA [Concomitant]
     Active Substance: HYDROXYUREA
     Indication: Product used for unknown indication
     Dosage: 500 MILLIGRAM
     Route: 065
  7. VITAMINS [Concomitant]
     Active Substance: VITAMINS
     Indication: Product used for unknown indication
     Route: 065

REACTIONS (6)
  - Fatigue [Not Recovered/Not Resolved]
  - Product dose omission issue [Unknown]
  - Platelet count decreased [Recovering/Resolving]
  - Nausea [Not Recovered/Not Resolved]
  - Diarrhoea [Not Recovered/Not Resolved]
  - Headache [Not Recovered/Not Resolved]

NARRATIVE: CASE EVENT DATE: 20210817
